FAERS Safety Report 11562150 (Version 1)
Quarter: 2015Q3

REPORT INFORMATION
  Report Type: Spontaneous
  Country: JP (occurrence: JP)
  Receive Date: 20150928
  Receipt Date: 20150928
  Transmission Date: 20151125
  Serious: Yes (Death)
  Sender: FDA-Public Use
  Company Number: PHJP2015JP015881

PATIENT

DRUGS (1)
  1. FARYDAK [Suspect]
     Active Substance: PANOBINOSTAT
     Indication: PLASMA CELL MYELOMA
     Dosage: 20 MG, QD, ON DAYS 1,3,5,8, 10 AND 12 OF A 21 DAYS CYCLE
     Route: 048
     Dates: start: 20150904, end: 20150916

REACTIONS (4)
  - Death [Fatal]
  - Diarrhoea [Unknown]
  - Nausea [Unknown]
  - Platelet count decreased [Unknown]

NARRATIVE: CASE EVENT DATE: 20150910
